FAERS Safety Report 14449493 (Version 6)
Quarter: 2019Q3

REPORT INFORMATION
  Report Type: Report from Study
  Country: US (occurrence: US)
  Receive Date: 20180127
  Receipt Date: 20190717
  Transmission Date: 20191004
  Serious: Yes (Hospitalization)
  Sender: FDA-Public Use
  Company Number: PHEH2018US003391

PATIENT
  Age: 84 Year
  Sex: Female
  Weight: 59 kg

DRUGS (5)
  1. CARVEDILOL. [Concomitant]
     Active Substance: CARVEDILOL
     Indication: PRODUCT USED FOR UNKNOWN INDICATION
     Route: 065
  2. DIGOXIN. [Concomitant]
     Active Substance: DIGOXIN
     Indication: PRODUCT USED FOR UNKNOWN INDICATION
     Route: 065
  3. FENTANYL. [Concomitant]
     Active Substance: FENTANYL
     Indication: PRODUCT USED FOR UNKNOWN INDICATION
     Route: 065
  4. ENTRESTO [Suspect]
     Active Substance: SACUBITRIL\VALSARTAN
     Indication: CARDIOMYOPATHY
     Dosage: 1 DF (24 MG OF SACUBITRIL/ 26 MG OF VALSARTAN), UNK
     Route: 048
  5. ENTRESTO [Suspect]
     Active Substance: SACUBITRIL\VALSARTAN
     Dosage: 1 DF (49 MG OF SACUBITRIL/ 51 MG OF VALSARTAN), UNK
     Route: 048
     Dates: start: 20171220

REACTIONS (11)
  - Spinal fracture [Not Recovered/Not Resolved]
  - Ejection fraction decreased [Unknown]
  - Troponin I increased [Unknown]
  - Atrial fibrillation [Recovered/Resolved]
  - Malaise [Unknown]
  - Headache [Unknown]
  - Fatigue [Unknown]
  - Cardiac valve disease [Unknown]
  - Chest pain [Unknown]
  - Electrocardiogram ST segment abnormal [Unknown]
  - Product use in unapproved indication [Unknown]

NARRATIVE: CASE EVENT DATE: 20190501
